FAERS Safety Report 21029796 (Version 1)
Quarter: 2022Q2

REPORT INFORMATION
  Report Type: Report from Study
  Country: CA (occurrence: CA)
  Receive Date: 20220630
  Receipt Date: 20220630
  Transmission Date: 20220720
  Serious: Yes (Other)
  Sender: FDA-Public Use
  Company Number: CA-BRISTOL-MYERS SQUIBB COMPANY-BMS-2022-028956

PATIENT
  Age: 69 Year
  Sex: Male
  Weight: 116 kg

DRUGS (2)
  1. OPDIVO [Suspect]
     Active Substance: NIVOLUMAB
     Indication: Oesophageal carcinoma
     Dosage: Q3WKS
     Route: 042
     Dates: start: 20220202
  2. OPDIVO [Suspect]
     Active Substance: NIVOLUMAB
     Route: 042
     Dates: start: 20220202

REACTIONS (15)
  - Mucosal inflammation [Unknown]
  - Rash [Recovering/Resolving]
  - Intentional product use issue [Unknown]
  - COVID-19 [Recovering/Resolving]
  - Weight abnormal [Unknown]
  - Condition aggravated [Unknown]
  - Fatigue [Unknown]
  - Palmar-plantar erythrodysaesthesia syndrome [Unknown]
  - Pain [Unknown]
  - Depression [Unknown]
  - Appetite disorder [Unknown]
  - Dyspnoea [Unknown]
  - Nausea [Unknown]
  - Fear [Unknown]
  - Anxiety [Unknown]
